FAERS Safety Report 5059396-2 (Version None)
Quarter: 2006Q3

REPORT INFORMATION
  Report Type: 
  Country: None (occurrence: None)
  Receive Date: 20060724
  Receipt Date: 20050526
  Transmission Date: 20061208
  Serious: Yes (Other)
  Sender: FDA-Public Use
  Company Number: US-AMGEN-KDL136474

PATIENT
  Sex: Male

DRUGS (2)
  1. PROCRIT [Suspect]
     Indication: ANAEMIA OF MALIGNANT DISEASE
     Route: 058
     Dates: start: 19990101
  2. MEDICINALPRODUCT NOT SPECIFIED BY SENDER [Concomitant]

REACTIONS (10)
  - ASTHENIA [None]
  - COUGH [None]
  - ERYTHEMA [None]
  - NECK MASS [None]
  - OEDEMA PERIPHERAL [None]
  - SYNCOPE [None]
  - THERAPEUTIC RESPONSE DECREASED [None]
  - THROMBOSIS [None]
  - URINARY TRACT INFECTION [None]
  - WHITE BLOOD CELL COUNT DECREASED [None]
